FAERS Safety Report 10638762 (Version 5)
Quarter: 2015Q2

REPORT INFORMATION
  Report Type: Spontaneous
  Country: GB (occurrence: None)
  Receive Date: 20141204
  Receipt Date: 20150402
  Transmission Date: 20150821
  Serious: Yes (Hospitalization)
  Sender: FDA-Public Use
  Company Number: 2647176

PATIENT
  Age: 39 Year
  Sex: Female

DRUGS (7)
  1. NAPROXEN. [Concomitant]
     Active Substance: NAPROXEN
  2. OMEPRAZOLE. [Concomitant]
     Active Substance: OMEPRAZOLE
  3. PARACETAMOL [Concomitant]
     Active Substance: ACETAMINOPHEN
  4. CODEINE [Concomitant]
     Active Substance: CODEINE
  5. METHOREXATE [Suspect]
     Active Substance: METHOTREXATE SODIUM
     Indication: PSORIATIC ARTHROPATHY
     Dosage: 20 MG MILLIGRAM(S), 1 WEEK, SUBCUTANEOUS
     Route: 058
     Dates: start: 200903
  6. ADALIMUMAB [Suspect]
     Active Substance: ADALIMUMAB
     Indication: PSORIATIC ARTHROPATHY
     Dosage: 40 MG MILLIGRAM(S), 1 WEEK, SUBCUTANEOUS?
     Route: 058
     Dates: start: 201004, end: 20100601
  7. FOLIC ACID. [Concomitant]
     Active Substance: FOLIC ACID

REACTIONS (12)
  - Blister [None]
  - Pustular psoriasis [None]
  - Skin fissures [None]
  - White blood cell count increased [None]
  - Skin exfoliation [None]
  - Impaired work ability [None]
  - Erythema [None]
  - Herpes zoster [None]
  - Onychomadesis [None]
  - Peripheral swelling [None]
  - Alopecia [None]
  - C-reactive protein increased [None]
